FAERS Safety Report 13151543 (Version 1)
Quarter: 2017Q1

REPORT INFORMATION
  Report Type: Spontaneous
  Country: US (occurrence: US)
  Receive Date: 20170125
  Receipt Date: 20170125
  Transmission Date: 20170428
  Serious: Yes (Other)
  Sender: FDA-Public Use
  Company Number: US-ASTRAZENECA-2017SE04969

PATIENT
  Age: 39 Year
  Sex: Male
  Weight: 75.3 kg

DRUGS (23)
  1. PERJETA [Concomitant]
     Active Substance: PERTUZUMAB
     Dosage: ONCE IN 3 WEEKS
     Route: 065
     Dates: start: 20160214
  2. CARBOPLATIN. [Concomitant]
     Active Substance: CARBOPLATIN
     Dates: start: 20160602, end: 20161005
  3. ABRAXANE [Concomitant]
     Active Substance: PACLITAXEL
     Dates: start: 20160602, end: 20161005
  4. BACTRIM DS [Concomitant]
     Active Substance: SULFAMETHOXAZOLE\TRIMETHOPRIM
     Route: 048
     Dates: start: 20160130
  5. PRILOSEC [Concomitant]
     Active Substance: OMEPRAZOLE MAGNESIUM
     Route: 048
  6. TYLENOL [Concomitant]
     Active Substance: ACETAMINOPHEN
     Indication: PAIN
     Route: 048
  7. LACTULOSE. [Concomitant]
     Active Substance: LACTULOSE
     Indication: CONSTIPATION
     Route: 048
  8. ATIVAN [Concomitant]
     Active Substance: LORAZEPAM
     Indication: ANXIETY
     Route: 048
  9. CARAFATE [Concomitant]
     Active Substance: SUCRALFATE
     Route: 048
  10. FULVESTRANT [Suspect]
     Active Substance: FULVESTRANT
     Dosage: ONCE IN TWO WEEKS FOR FIRST TWO WEEKS AND THEREAFTER ONCE MONTHLY
     Route: 030
     Dates: start: 20161008
  11. IBRANCE [Suspect]
     Active Substance: PALBOCICLIB
     Indication: BREAST CANCER MALE
     Route: 048
     Dates: start: 20161102
  12. ZOMETA [Concomitant]
     Active Substance: ZOLEDRONIC ACID
     Route: 065
  13. COMPAZINE [Concomitant]
     Active Substance: PROCHLORPERAZINE MALEATE
     Indication: VOMITING
     Route: 048
  14. TAXOTERE [Concomitant]
     Active Substance: DOCETAXEL
     Dosage: ONCE IN THREE WEEKS
     Route: 065
     Dates: start: 20160214
  15. HERCEPTIN [Concomitant]
     Active Substance: TRASTUZUMAB
     Dosage: ONCE IN 3 WEEKS
     Route: 065
     Dates: start: 20160214
  16. KADCYLA [Concomitant]
     Active Substance: ADO-TRASTUZUMAB EMTANSINE
     Dosage: ONCE IN THREE WEEKS
     Route: 065
     Dates: start: 20160418
  17. SENAKOT [Concomitant]
     Route: 048
  18. CYTOXAN [Concomitant]
     Active Substance: CYCLOPHOSPHAMIDE
     Dosage: ONCE IN 3 WEEKS
     Route: 065
     Dates: start: 201505
  19. ZOFRAN [Concomitant]
     Active Substance: ONDANSETRON HYDROCHLORIDE
     Indication: NAUSEA
     Route: 048
  20. COMPAZINE [Concomitant]
     Active Substance: PROCHLORPERAZINE MALEATE
     Indication: NAUSEA
     Route: 048
  21. MSIR [Concomitant]
     Active Substance: MORPHINE SULFATE
     Indication: PAIN
     Route: 048
  22. MS CONTIN [Concomitant]
     Active Substance: MORPHINE SULFATE
     Route: 048
  23. DIFLUCAN [Suspect]
     Active Substance: FLUCONAZOLE
     Route: 048

REACTIONS (8)
  - Wound [Unknown]
  - Metastases to skin [Unknown]
  - Fatigue [Unknown]
  - Wound haemorrhage [Unknown]
  - Haemoglobin decreased [Unknown]
  - Malignant neoplasm progression [Unknown]
  - Chest pain [Unknown]
  - Oral candidiasis [Unknown]
